FAERS Safety Report 10182558 (Version 1)
Quarter: 2014Q2

REPORT INFORMATION
  Report Type: Spontaneous
  Country: US (occurrence: None)
  Receive Date: 20140519
  Receipt Date: 20140519
  Transmission Date: 20141212
  Serious: Yes (Other)
  Sender: FDA-Public Use
  Company Number: None

PATIENT
  Age: 57 Year
  Sex: Female
  Weight: 79.38 kg

DRUGS (1)
  1. LEVOFLOXACIN 500 MG [Suspect]
     Indication: PNEUMONIA
     Dosage: 1 TABLET EVERY 24 HRS ONCE DAILY TAKEN BY MOUTH
     Route: 048
     Dates: start: 20140502, end: 20140506

REACTIONS (3)
  - Tendonitis [None]
  - Pain [None]
  - Swelling [None]
